FAERS Safety Report 6479539-3 (Version None)
Quarter: 2009Q4

REPORT INFORMATION
  Report Type: 
  Country: None (occurrence: None)
  Receive Date: 20091208
  Receipt Date: 20091201
  Transmission Date: 20100525
  Serious: Yes (Death)
  Sender: FDA-Public Use
  Company Number: TR-ELI_LILLY_AND_COMPANY-TR200912000155

PATIENT

DRUGS (2)
  1. HUMULIN N [Suspect]
     Dosage: 12 U, 3/D
     Route: 064
     Dates: start: 20040601
  2. HUMULIN R [Suspect]
     Indication: DIABETES MELLITUS
     Dosage: 12 U, DAILY (1/D)
     Route: 064
     Dates: start: 20040601

REACTIONS (2)
  - DRUG EXPOSURE DURING PREGNANCY [None]
  - INTRA-UTERINE DEATH [None]
